FAERS Safety Report 4446707-1 (Version None)
Quarter: 2004Q3

REPORT INFORMATION
  Report Type: 
  Country: None (occurrence: None)
  Receive Date: 20040908
  Receipt Date: 20040820
  Transmission Date: 20050211
  Serious: Yes (Disabling, Other)
  Sender: FDA-Public Use
  Company Number: SP-2004-001816

PATIENT
  Age: 89 Year
  Sex: Female
  Weight: 42 kg

DRUGS (5)
  1. OLMETEC [Suspect]
     Indication: HYPERTENSION
     Dosage: 10 MG QD PO
     Route: 048
     Dates: start: 20040622, end: 20040629
  2. PARIET [Concomitant]
  3. TRAMACET [Concomitant]
  4. BENDROFLUAZIDE [Concomitant]
  5. PREDNISOLONE [Concomitant]

REACTIONS (3)
  - ARTHRALGIA [None]
  - GROIN PAIN [None]
  - INFLAMMATION [None]
